FAERS Safety Report 24712305 (Version 1)
Quarter: 2024Q4

REPORT INFORMATION
  Report Type: Spontaneous
  Country: US (occurrence: US)
  Receive Date: 20241209
  Receipt Date: 20241209
  Transmission Date: 20250114
  Serious: Yes (Hospitalization)
  Sender: Alora Pharma
  Company Number: US-ACELLA PHARMACEUTICALS, LLC-2023ALO00092

PATIENT
  Sex: Female

DRUGS (1)
  1. DSUVIA [Suspect]
     Active Substance: SUFENTANIL
     Dosage: UNK

REACTIONS (1)
  - Hypotension [Unknown]
